FAERS Safety Report 19103812 (Version 9)
Quarter: 2021Q4

REPORT INFORMATION
  Report Type: Spontaneous
  Country: IL (occurrence: IL)
  Receive Date: 20210407
  Receipt Date: 20211221
  Transmission Date: 20220303
  Serious: Yes (Other)
  Sender: FDA-Public Use
  Company Number: IL-CELGENE-ISR-20210400805

PATIENT
  Age: 42 Year
  Sex: Female

DRUGS (2)
  1. THALIDOMIDE [Suspect]
     Active Substance: THALIDOMIDE
     Indication: Subacute cutaneous lupus erythematosus
     Route: 048
     Dates: start: 201111
  2. THALIDOMIDE [Suspect]
     Active Substance: THALIDOMIDE
     Indication: Off label use

REACTIONS (1)
  - Human chorionic gonadotropin abnormal [Unknown]

NARRATIVE: CASE EVENT DATE: 20210404
